FAERS Safety Report 18573719 (Version 5)
Quarter: 2021Q1

REPORT INFORMATION
  Report Type: Spontaneous
  Country: US (occurrence: US)
  Receive Date: 20201203
  Receipt Date: 20210121
  Transmission Date: 20210419
  Serious: Yes (Hospitalization)
  Sender: FDA-Public Use
  Company Number: US-CELGENEUS-USA-20201107217

PATIENT
  Age: 77 Year
  Sex: Female
  Weight: 58.2 kg

DRUGS (13)
  1. LISINOPRIL AND HYDROCHLOROTHIAZIDE [Concomitant]
     Active Substance: HYDROCHLOROTHIAZIDE\LISINOPRIL
     Indication: HYPERTENSION
     Dosage: 2?12.5MG
     Route: 048
     Dates: start: 2015
  2. AZACITIDINE. [Suspect]
     Active Substance: AZACITIDINE
     Indication: ACUTE MYELOID LEUKAEMIA
     Dosage: 75 MILLIGRAM/SQ. METER
     Route: 041
     Dates: start: 20201102
  3. VENETOCLAX. [Suspect]
     Active Substance: VENETOCLAX
     Dosage: C1D1 100MG , C1D2 200 MG ,C1D3?28 400 MG
     Route: 048
     Dates: start: 20201103, end: 20201103
  4. VENETOCLAX. [Suspect]
     Active Substance: VENETOCLAX
     Dosage: C1D1 100MG , C1D2 200 MG ,C1D3?28 400 MG
     Route: 048
     Dates: start: 20201104
  5. COLACE [Concomitant]
     Active Substance: DOCUSATE SODIUM
     Indication: CONSTIPATION
     Route: 048
     Dates: start: 20201109
  6. ACYCLOVIR. [Concomitant]
     Active Substance: ACYCLOVIR
     Indication: PROPHYLAXIS
     Dosage: 400 MILLIGRAM
     Route: 048
     Dates: start: 20201102
  7. VENETOCLAX. [Suspect]
     Active Substance: VENETOCLAX
     Indication: ACUTE MYELOID LEUKAEMIA
     Dosage: C1D1 100MG , C1D2 200 MG ,C1D3?28 400 MG
     Route: 048
     Dates: start: 20201102, end: 20201102
  8. DECITABINE. [Suspect]
     Active Substance: DECITABINE
     Indication: ACUTE MYELOID LEUKAEMIA
     Dosage: 20 MILLIGRAM/SQ. METER
     Route: 041
  9. ASPIRIN. [Concomitant]
     Active Substance: ASPIRIN
     Indication: CARDIOVASCULAR EVENT PROPHYLAXIS
     Dosage: 81 MILLIGRAM
     Route: 048
     Dates: start: 2015
  10. VITAMIN D3 [Concomitant]
     Active Substance: CHOLECALCIFEROL
     Indication: VITAMIN D DEFICIENCY
     Dosage: 1250 MICROGRAM
     Route: 048
     Dates: start: 20200630
  11. ZOFRAN [Concomitant]
     Active Substance: ONDANSETRON HYDROCHLORIDE
     Indication: NAUSEA
     Route: 048
     Dates: start: 20201102
  12. COMPAZINE [Concomitant]
     Active Substance: PROCHLORPERAZINE MALEATE
     Indication: NAUSEA
     Dosage: 10 MILLIGRAM
     Route: 048
     Dates: start: 20201102
  13. ALLOPURINOL. [Concomitant]
     Active Substance: ALLOPURINOL
     Indication: PROPHYLAXIS
     Dosage: 300 MILLIGRAM
     Route: 048
     Dates: start: 20201030

REACTIONS (1)
  - Skin infection [Recovered/Resolved]

NARRATIVE: CASE EVENT DATE: 20201120
